FAERS Safety Report 18207601 (Version 1)
Quarter: 2020Q3

REPORT INFORMATION
  Report Type: Spontaneous
  Country: US (occurrence: US)
  Receive Date: 20200828
  Receipt Date: 20200828
  Transmission Date: 20201103
  Serious: No
  Sender: FDA-Public Use
  Company Number: None

PATIENT
  Age: 71 Year
  Sex: Female
  Weight: 73.35 kg

DRUGS (15)
  1. TYKERB [Suspect]
     Active Substance: LAPATINIB DITOSYLATE
     Indication: BREAST CANCER
     Route: 048
     Dates: start: 20200813
  2. CHLOROPHYLL [Concomitant]
  3. METOPROLOL. [Concomitant]
     Active Substance: METOPROLOL
  4. NORVASC [Concomitant]
     Active Substance: AMLODIPINE BESYLATE
  5. FASLODEX [Concomitant]
     Active Substance: FULVESTRANT
  6. VITAMIN D [Concomitant]
     Active Substance: VITAMIN D NOS
  7. CYPROHEPTADINE. [Concomitant]
     Active Substance: CYPROHEPTADINE
  8. DIOVAN [Concomitant]
     Active Substance: VALSARTAN
  9. CAPECITABINE. [Suspect]
     Active Substance: CAPECITABINE
     Indication: BREAST CANCER
     Route: 048
     Dates: start: 20200220
  10. LEXAPRO [Concomitant]
     Active Substance: ESCITALOPRAM OXALATE
  11. PRILOSEC [Concomitant]
     Active Substance: OMEPRAZOLE MAGNESIUM
  12. ABILIFY [Concomitant]
     Active Substance: ARIPIPRAZOLE
  13. LETROZOLE. [Concomitant]
     Active Substance: LETROZOLE
  14. KLOR?CON [Concomitant]
     Active Substance: POTASSIUM CHLORIDE
  15. VITAMIN C [Concomitant]
     Active Substance: ASCORBIC ACID

REACTIONS (2)
  - Skin discolouration [None]
  - Infection [None]

NARRATIVE: CASE EVENT DATE: 20200828
